FAERS Safety Report 8136854-5 (Version None)
Quarter: 2012Q1

REPORT INFORMATION
  Report Type: 
  Country: None (occurrence: None)
  Receive Date: 20120214
  Receipt Date: 20120213
  Transmission Date: 20120608
  Serious: Yes (Hospitalization)
  Sender: FDA-Public Use
  Company Number: US-GILEAD-2012-0050829

PATIENT
  Age: 58 Year
  Sex: Female

DRUGS (1)
  1. CAYSTON [Suspect]
     Indication: PRODUCT USED FOR UNKNOWN INDICATION

REACTIONS (4)
  - VOMITING [None]
  - PNEUMONIA [None]
  - WHEEZING [None]
  - PYREXIA [None]
